FAERS Safety Report 9736377 (Version 1)
Quarter: 2013Q4

REPORT INFORMATION
  Report Type: Spontaneous
  Country: US (occurrence: None)
  Receive Date: 20131204
  Receipt Date: 20131204
  Transmission Date: 20140711
  Serious: Yes (Death)
  Sender: FDA-Public Use
  Company Number: US-ALKEM-000299

PATIENT
  Age: 54 Year
  Sex: Female

DRUGS (9)
  1. AMLODIPINE [Suspect]
     Dosage: ORAL
     Route: 048
  2. GABAPENTIN [Suspect]
     Dosage: ORAL
     Route: 048
  3. OXCARBAZEPINE [Suspect]
     Route: 048
  4. HYDROXYZINE (HYDROXYZINE) [Suspect]
     Route: 048
  5. LISINOPRIL (LISINOPRIL) [Suspect]
     Route: 048
  6. LAMOTRIGINE (LAMOTRIGINE) [Suspect]
     Route: 048
  7. RISPERIDONE (RISPERIDONE) [Suspect]
     Route: 048
  8. FLUOXETINE (FLUOXETINE) [Suspect]
     Route: 048
  9. BUSPIRONE (BUSPIRONE) [Suspect]
     Route: 048

REACTIONS (2)
  - Completed suicide [None]
  - Exposure via ingestion [None]
